FAERS Safety Report 16032366 (Version 1)
Quarter: 2019Q1

REPORT INFORMATION
  Report Type: Spontaneous
  Country: DK (occurrence: DK)
  Receive Date: 20190304
  Receipt Date: 20190304
  Transmission Date: 20190418
  Serious: Yes (Hospitalization)
  Sender: FDA-Public Use
  Company Number: PHHY2019DK045942

PATIENT
  Age: 40 Year
  Sex: Male
  Weight: 84 kg

DRUGS (3)
  1. IBUPROFEN. [Concomitant]
     Active Substance: IBUPROFEN
     Indication: PAIN
     Dosage: 200 MG, UNK(200MG. DOSIS:EFTER BEHOV)
     Route: 048
  2. SALAZOPYRIN EN-TABS. [Concomitant]
     Active Substance: SULFASALAZINE
     Indication: ANKYLOSING SPONDYLITIS
     Dosage: 2000 MG, QD (STYRKE: 500 MG  )
     Route: 048
     Dates: start: 20120906
  3. HYRIMOZ [Suspect]
     Active Substance: ADALIMUMAB-ADAZ
     Indication: ANKYLOSING SPONDYLITIS
     Dosage: 40 MG, Q2W (STYRKE: 40 MG)
     Route: 058
     Dates: start: 20181214

REACTIONS (4)
  - Renal impairment [Not Recovered/Not Resolved]
  - Urinary tract infection [Unknown]
  - Haematuria [Unknown]
  - Pollakiuria [Unknown]

NARRATIVE: CASE EVENT DATE: 20190130
